FAERS Safety Report 13191896 (Version 1)
Quarter: 2017Q1

REPORT INFORMATION
  Report Type: Spontaneous
  Country: US (occurrence: US)
  Receive Date: 20170207
  Receipt Date: 20170207
  Transmission Date: 20170428
  Serious: Yes (Hospitalization, Other)
  Sender: FDA-Public Use
  Company Number: US-WEST-WARD PHARMACEUTICALS CORP.-US-H14001-17-00251

PATIENT
  Age: 41 Year
  Sex: Female
  Weight: 54.48 kg

DRUGS (4)
  1. AMITRIPTYLINE [Concomitant]
     Active Substance: AMITRIPTYLINE
     Indication: PRODUCT USED FOR UNKNOWN INDICATION
     Route: 065
  2. ATIVAN [Suspect]
     Active Substance: LORAZEPAM
     Indication: SEDATION
     Route: 065
     Dates: start: 20151001, end: 20151001
  3. PREDNISONE. [Concomitant]
     Active Substance: PREDNISONE
     Indication: COUGH
     Route: 065
  4. ATIVAN [Suspect]
     Active Substance: LORAZEPAM
     Indication: PRODUCT USED FOR UNKNOWN INDICATION
     Route: 065
     Dates: start: 20160825, end: 20160825

REACTIONS (7)
  - Defiant behaviour [Unknown]
  - Disorientation [Unknown]
  - Bipolar disorder [Not Recovered/Not Resolved]
  - Drug effect increased [Unknown]
  - Stupor [Unknown]
  - Somnolence [Unknown]
  - Aggression [Unknown]

NARRATIVE: CASE EVENT DATE: 201510
